FAERS Safety Report 5890256-0 (Version None)
Quarter: 2008Q3

REPORT INFORMATION
  Report Type: 
  Country: None (occurrence: None)
  Receive Date: 20080919
  Receipt Date: 20080915
  Transmission Date: 20090109
  Serious: Yes (Other)
  Sender: FDA-Public Use
  Company Number: DE-PFIZER INC-2008077505

PATIENT
  Sex: Male

DRUGS (3)
  1. SORTIS [Suspect]
     Indication: BLOOD CHOLESTEROL INCREASED
     Dosage: DAILY DOSE:20MG
     Route: 048
  2. SORTIS [Suspect]
     Indication: ARTERIOSCLEROSIS CORONARY ARTERY
  3. ASPIRIN [Concomitant]

REACTIONS (2)
  - CHOLECYSTITIS [None]
  - HEPATIC CIRRHOSIS [None]
